FAERS Safety Report 5092392-8 (Version None)
Quarter: 2006Q3

REPORT INFORMATION
  Report Type: 
  Country: None (occurrence: None)
  Receive Date: 20060825
  Receipt Date: 20060814
  Transmission Date: 20061208
  Serious: Yes (Hospitalization)
  Sender: FDA-Public Use
  Company Number: US-2006-004588

PATIENT
  Age: 82 Year
  Sex: Male

DRUGS (17)
  1. CAMPATH [Suspect]
     Indication: CHRONIC LYMPHOCYTIC LEUKAEMIA
     Dosage: SEE IMAGE
     Route: 058
     Dates: start: 20060127, end: 20060127
  2. CAMPATH [Suspect]
     Indication: CHRONIC LYMPHOCYTIC LEUKAEMIA
     Dosage: SEE IMAGE
     Route: 058
     Dates: start: 20060206, end: 20060208
  3. CAMPATH [Suspect]
     Indication: CHRONIC LYMPHOCYTIC LEUKAEMIA
     Dosage: SEE IMAGE
     Route: 058
     Dates: start: 20060210, end: 20060213
  4. CAMPATH [Suspect]
     Indication: CHRONIC LYMPHOCYTIC LEUKAEMIA
     Dosage: SEE IMAGE
     Route: 058
     Dates: start: 20060215, end: 20060217
  5. CAMPATH [Suspect]
     Indication: CHRONIC LYMPHOCYTIC LEUKAEMIA
     Dosage: SEE IMAGE
     Route: 058
     Dates: start: 20060222, end: 20060303
  6. TYLENOL [Concomitant]
  7. BENADRYL ^ACHE^ (AMMONIUM CHLORIDE, MENTHOL, DIPHENHYDRAMINE HYDROCHLO [Concomitant]
  8. DECADRON /CAN/ [Concomitant]
  9. BACTRIM [Concomitant]
  10. ACYCLOVIR [Concomitant]
  11. ALLOPURINOL [Concomitant]
  12. DIFLUCAN [Concomitant]
  13. PROSCAR [Concomitant]
  14. VITAMINS [Concomitant]
  15. COMBIVENT /GFR/ (IPRATROPIUM BROMIDE) INHALER [Concomitant]
  16. ADVAIR (FLUTICASONE PROPIONATE, SALMETEROL XINAFOATE) INHALER [Concomitant]
  17. ATROVENT (IPRATROPIUM BROMIDE) INHALER [Concomitant]

REACTIONS (27)
  - AMNESIA [None]
  - ANOREXIA [None]
  - ASTHMA [None]
  - BLOOD PRESSURE DECREASED [None]
  - CATHETER SITE PAIN [None]
  - CHILLS [None]
  - DELUSION [None]
  - DISORIENTATION [None]
  - DYSGRAPHIA [None]
  - DYSPNOEA [None]
  - FATIGUE [None]
  - FEELING ABNORMAL [None]
  - HEADACHE [None]
  - INCOHERENT [None]
  - INJECTION SITE ERYTHEMA [None]
  - INJECTION SITE PRURITUS [None]
  - INJECTION SITE RASH [None]
  - INJECTION SITE SWELLING [None]
  - LOSS OF CONSCIOUSNESS [None]
  - LYMPHOCYTE COUNT DECREASED [None]
  - MENTAL STATUS CHANGES [None]
  - MUSCLE SPASMS [None]
  - PERICARDIAL EFFUSION [None]
  - PROCEDURAL PAIN [None]
  - PYREXIA [None]
  - URINARY INCONTINENCE [None]
  - VIRAL INFECTION [None]
